FAERS Safety Report 5382513-1 (Version None)
Quarter: 2007Q2

REPORT INFORMATION
  Report Type: 
  Country: None (occurrence: None)
  Receive Date: 20070629
  Receipt Date: 20070201
  Transmission Date: 20071010
  Serious: Yes (Hospitalization)
  Sender: FDA-Public Use
  Company Number: US200702000211

PATIENT
  Sex: Male

DRUGS (5)
  1. HUMULIN N [Suspect]
     Indication: HYPERGLYCAEMIA
     Dates: start: 19970101
  2. HUMALOG [Suspect]
     Indication: HYPERGLYCAEMIA
     Dates: start: 19970101
  3. HUMULIN N PEN (HUMULIN N PEN) [Concomitant]
  4. HUMALOG PEN (HUMALOG PEN) [Concomitant]
  5. DEPAKOTE [Concomitant]

REACTIONS (3)
  - ABDOMINAL PAIN UPPER [None]
  - DEPRESSION [None]
  - PANCREATITIS [None]
